FAERS Safety Report 8585636-9 (Version None)
Quarter: 2012Q3

REPORT INFORMATION
  Report Type: 
  Country: None (occurrence: None)
  Receive Date: 20120802
  Receipt Date: 20120802
  Transmission Date: 20120928
  Serious: Yes (Life-Threatening)
  Sender: FDA-Public Use
  Company Number: None

PATIENT
  Sex: Male
  Weight: 63.2 kg

DRUGS (2)
  1. CETUXIMAB [Suspect]
  2. CETUXIMAB [Suspect]
     Dosage: 250 MG/M2 IV
     Route: 042
     Dates: start: 20120710, end: 20120731

REACTIONS (1)
  - ANAPHYLACTIC REACTION [None]
